FAERS Safety Report 10556908 (Version 1)
Quarter: 2014Q4

REPORT INFORMATION
  Report Type: Spontaneous
  Country: US (occurrence: None)
  Receive Date: 20141030
  Receipt Date: 20141030
  Transmission Date: 20150529
  Serious: Yes (Other)
  Sender: FDA-Public Use
  Company Number: None

PATIENT
  Age: 86 Year
  Sex: Male

DRUGS (1)
  1. XTANDI [Suspect]
     Active Substance: ENZALUTAMIDE
     Indication: PROSTATE CANCER
     Route: 048
     Dates: start: 20141009

REACTIONS (7)
  - Periorbital contusion [None]
  - Neck pain [None]
  - Blood pressure fluctuation [None]
  - Fall [None]
  - Skin burning sensation [None]
  - Arthralgia [None]
  - Head injury [None]

NARRATIVE: CASE EVENT DATE: 20141026
